FAERS Safety Report 22861076 (Version 3)
Quarter: 2023Q4

REPORT INFORMATION
  Report Type: Report from Study
  Country: BD (occurrence: BD)
  Receive Date: 20230824
  Receipt Date: 20231109
  Transmission Date: 20240110
  Serious: Yes (Hospitalization, Other)
  Sender: FDA-Public Use
  Company Number: BD-002147023-NVSC2023BD014862

PATIENT
  Age: 55 Year
  Sex: Male

DRUGS (1)
  1. ENTRESTO [Suspect]
     Active Substance: SACUBITRIL\VALSARTAN
     Indication: Cardiac failure chronic
     Dosage: UNK
     Route: 048
     Dates: start: 202201

REACTIONS (15)
  - Discomfort [Unknown]
  - Diabetes mellitus [Unknown]
  - Pyrexia [Recovered/Resolved]
  - Oropharyngeal pain [Recovered/Resolved]
  - Asthma [Recovered/Resolved]
  - Movement disorder [Recovering/Resolving]
  - Back pain [Recovered/Resolved]
  - Dyspnoea exertional [Recovering/Resolving]
  - Palpitations [Unknown]
  - Sleep disorder [Unknown]
  - Hypotension [Recovered/Resolved]
  - Chest pain [Recovered/Resolved]
  - Neck pain [Recovered/Resolved]
  - Pain in extremity [Not Recovered/Not Resolved]
  - Asthenia [Recovered/Resolved]

NARRATIVE: CASE EVENT DATE: 20230118
